FAERS Safety Report 12994333 (Version 5)
Quarter: 2021Q4

REPORT INFORMATION
  Report Type: Spontaneous
  Country: JP (occurrence: JP)
  Receive Date: 20161202
  Receipt Date: 20211126
  Transmission Date: 20220304
  Serious: No
  Sender: FDA-Public Use
  Company Number: JP-MSD-1611JPN002129J

PATIENT
  Age: 63 Year
  Sex: Male

DRUGS (2)
  1. SITAGLIPTIN [Suspect]
     Active Substance: SITAGLIPTIN
     Indication: Type 2 diabetes mellitus
     Dosage: UNK
     Route: 048
  2. LOXOPROFEN [Suspect]
     Active Substance: LOXOPROFEN
     Dosage: UNK

REACTIONS (2)
  - Tubulointerstitial nephritis [Unknown]
  - Renal disorder [Unknown]
